FAERS Safety Report 4914184-X (Version None)
Quarter: 2006Q1

REPORT INFORMATION
  Report Type: 
  Country: None (occurrence: None)
  Receive Date: 20060213
  Receipt Date: 20060131
  Transmission Date: 20060701
  Serious: Yes (Hospitalization)
  Sender: FDA-Public Use
  Company Number: 2006EN000060

PATIENT
  Age: 14 Year
  Sex: Female
  Weight: 59 kg

DRUGS (4)
  1. ONCASPAR [Suspect]
     Indication: ACUTE LYMPHOCYTIC LEUKAEMIA
     Dosage: 1600 IU;QD;IV
     Route: 042
     Dates: start: 20051226, end: 20051226
  2. DEXAMETHASONE [Concomitant]
  3. DOXORUBICIN HCL [Concomitant]
  4. ONCOVIN [Concomitant]

REACTIONS (5)
  - ANGIONEUROTIC OEDEMA [None]
  - DIZZINESS [None]
  - HYPERHIDROSIS [None]
  - NAUSEA [None]
  - PALPITATIONS [None]
